FAERS Safety Report 15657733 (Version 1)
Quarter: 2018Q4

REPORT INFORMATION
  Report Type: Spontaneous
  Country: US (occurrence: US)
  Receive Date: 20181126
  Receipt Date: 20181126
  Transmission Date: 20190205
  Serious: Yes (Hospitalization, Other)
  Sender: FDA-Public Use
  Company Number: US-PROCTER_AND_GAMBLE-GS18129222

PATIENT
  Age: 27 Year
  Sex: Male

DRUGS (3)
  1. METHAMPHETAMINE                    /00069101/ [Concomitant]
     Active Substance: METHAMPHETAMINE
     Indication: BACK PAIN
  2. DEXTROMETHORPHAN AND GUAIFENSIN, UNSPECIFIED COMBINATION [Suspect]
     Active Substance: DEXTROMETHORPHAN\GUAIFENESIN
     Dosage: LARGE INGESTION OF  CO-FORMULATED PRODUCT CO-FORMULATED PRODUCT
     Route: 048
  3. PARACETAMOL [Suspect]
     Active Substance: ACETAMINOPHEN
     Indication: BACK PAIN

REACTIONS (18)
  - Neuropsychiatric symptoms [Recovered/Resolved]
  - Blood chloride increased [Recovered/Resolved]
  - Metabolic acidosis [Recovered/Resolved]
  - Staring [Unknown]
  - Blood bicarbonate decreased [Recovering/Resolving]
  - Serotonin syndrome [Unknown]
  - Toxicity to various agents [Unknown]
  - Nystagmus [Unknown]
  - Alanine aminotransferase increased [Recovering/Resolving]
  - Drug abuse [Unknown]
  - Tachycardia [Recovered/Resolved]
  - Mood altered [Recovering/Resolving]
  - Aspartate aminotransferase increased [Recovering/Resolving]
  - Hyporesponsive to stimuli [Unknown]
  - Analgesic drug level increased [Unknown]
  - Hyperchloraemia [Recovered/Resolved]
  - Clonus [Recovered/Resolved]
  - Blood bromide increased [Unknown]
